FAERS Safety Report 5634576-3 (Version None)
Quarter: 2008Q1

REPORT INFORMATION
  Report Type: 
  Country: None (occurrence: None)
  Receive Date: 20080222
  Receipt Date: 20080125
  Transmission Date: 20080703
  Serious: Yes (Other)
  Sender: FDA-Public Use
  Company Number: JP-ROCHE-534229

PATIENT
  Age: 5 Year
  Sex: Male
  Weight: 18 kg

DRUGS (4)
  1. TAMIFLU [Suspect]
     Dosage: DRUG NAME: TAMIFLU DRY SYRUP (3%).
     Route: 048
     Dates: start: 20071113, end: 20071113
  2. ASVERIN [Concomitant]
     Indication: COUGH
     Route: 048
     Dates: start: 20071113, end: 20071115
  3. PERIACTIN [Concomitant]
     Route: 048
     Dates: start: 20071113, end: 20071115
  4. CALONAL [Concomitant]
     Dosage: FORM REPORTED AS: FINE GRANULE TAKEN AS NEEDED
     Route: 048

REACTIONS (1)
  - ABNORMAL BEHAVIOUR [None]
